FAERS Safety Report 7937790-7 (Version None)
Quarter: 2011Q4

REPORT INFORMATION
  Report Type: 
  Country: None (occurrence: None)
  Receive Date: 20111123
  Receipt Date: 20111114
  Transmission Date: 20120403
  Serious: Yes (Other)
  Sender: FDA-Public Use
  Company Number: CA-ASTRAZENECA-2011SE68867

PATIENT
  Age: 56 Year
  Sex: Male
  Weight: 126 kg

DRUGS (10)
  1. ASPIRIN [Concomitant]
     Route: 065
  2. CRESTOR [Concomitant]
     Route: 048
  3. AMLODIPINE [Concomitant]
     Route: 065
  4. GLUCOPHAGE [Concomitant]
     Route: 065
  5. ATACAND HCT [Suspect]
     Route: 048
  6. ATACAND HCT [Suspect]
     Route: 048
  7. ALFUZOSIN HCL [Concomitant]
     Route: 065
  8. VICTOZA [Suspect]
     Route: 058
  9. ACEBUTOLOL [Concomitant]
     Route: 065
  10. SYNTHROID [Concomitant]
     Route: 065

REACTIONS (3)
  - GOUT [None]
  - WEIGHT DECREASED [None]
  - ABDOMINAL PAIN [None]
